FAERS Safety Report 10159496 (Version 1)
Quarter: 2014Q2

REPORT INFORMATION
  Report Type: Spontaneous
  Country: GB (occurrence: GB)
  Receive Date: 20140508
  Receipt Date: 20140508
  Transmission Date: 20141212
  Serious: Yes (Hospitalization)
  Sender: FDA-Public Use
  Company Number: GB-MYLANLABS-2014S1009767

PATIENT
  Age: 74 Year
  Sex: Male

DRUGS (13)
  1. CLOPIDOGREL [Suspect]
     Dosage: 75 MG, QD
     Dates: start: 20051013
  2. ACETYLSALICYLIC ACID [Suspect]
     Indication: CARDIOVASCULAR EVENT PROPHYLAXIS
     Dosage: 75 MG, QD
     Route: 048
     Dates: start: 19980511
  3. ALISKIREN [Suspect]
     Indication: CARDIOVASCULAR DISORDER
     Dates: start: 20090713, end: 20101018
  4. AMLODIPINE [Concomitant]
     Indication: HYPERTENSION
     Dosage: 10 MG, QD
     Dates: start: 19981123
  5. BISOPROLOL [Concomitant]
     Indication: HYPERTENSION
     Dosage: 2.5 MG, QD
     Dates: start: 20100310
  6. DOXAZOSIN [Concomitant]
     Indication: HYPERTENSION
     Dosage: 12 MG, QD
  7. FRUSEMIDE [Concomitant]
     Indication: HYPERTENSION
     Dosage: 40 MG, QD
     Dates: start: 20100722
  8. FRUSEMIDE [Concomitant]
     Indication: HYPERTENSION
  9. HUMAN INSULATARD [Concomitant]
     Indication: DIABETES MELLITUS
     Dosage: 34+32 IU, BID
  10. HYDROCHLOROTHIAZIDE [Concomitant]
     Indication: HYPERTENSION
     Dosage: 425 MG, QD
  11. IRBESARTAN [Concomitant]
     Indication: HYPERTENSION
     Dosage: 425 MG, QD
  12. METFORMIN [Concomitant]
     Indication: DIABETES MELLITUS
     Dosage: 850 MG, BID
  13. PRAVASTATIN [Concomitant]
     Indication: HYPERCHOLESTEROLAEMIA
     Dosage: 10 MG, QD
     Dates: start: 20020228

REACTIONS (4)
  - Atrioventricular block first degree [Not Recovered/Not Resolved]
  - Post procedural haematoma [Recovering/Resolving]
  - Angina pectoris [Recovered/Resolved]
  - Concomitant disease progression [Recovered/Resolved]
